FAERS Safety Report 5075990-7 (Version None)
Quarter: 2006Q3

REPORT INFORMATION
  Report Type: 
  Country: None (occurrence: None)
  Receive Date: 20060808
  Receipt Date: 20060808
  Transmission Date: 20061208
  Serious: Yes (Hospitalization)
  Sender: FDA-Public Use
  Company Number: None

PATIENT
  Sex: Male
  Weight: 76.3 kg

DRUGS (6)
  1. CYCLOPHOSPHAMIDE [Suspect]
     Dosage: 380 MG
  2. DEXAMETHASONE [Suspect]
     Dosage: 95 MG
  3. DOXORUBICIN HYDROCHLORIDE [Suspect]
     Dosage: 47.5 MG
  4. LEUCOVORIN CALCIUM [Suspect]
     Dosage: 120 MG
  5. METHOTREXATE [Suspect]
     Dosage: 2845 MG
  6. VINCRISTINE SULFATE [Suspect]
     Dosage: 2 MG

REACTIONS (2)
  - FEBRILE NEUTROPENIA [None]
  - MUCOSAL INFLAMMATION [None]
